FAERS Safety Report 11459529 (Version 1)
Quarter: 2015Q3

REPORT INFORMATION
  Report Type: Spontaneous
  Country: US (occurrence: US)
  Receive Date: 20150904
  Receipt Date: 20150904
  Transmission Date: 20151125
  Serious: No
  Sender: FDA-Public Use
  Company Number: US-TARO-2014TAR00520

PATIENT
  Age: 64 Year
  Sex: Female
  Weight: 114.29 kg

DRUGS (6)
  1. METOPROLOL [Concomitant]
     Active Substance: METOPROLOL
  2. WARFARIN SODIUM TABLETS USP 3MG [Suspect]
     Active Substance: WARFARIN SODIUM
     Dosage: 3 MG, 4X/WEEK
     Dates: start: 20141024
  3. RAMIPRIL. [Concomitant]
     Active Substance: RAMIPRIL
  4. DIGOXIN. [Concomitant]
     Active Substance: DIGOXIN
  5. WARFARIN SODIUM TABLETS USP 3MG [Suspect]
     Active Substance: WARFARIN SODIUM
     Indication: ATRIAL FIBRILLATION
     Dosage: 3 MG, 1X/DAY
     Route: 048
     Dates: start: 201212, end: 20141024
  6. WARFARIN SODIUM TABLETS USP 3MG [Suspect]
     Active Substance: WARFARIN SODIUM
     Dosage: 6 MG, 3X/WEEK
     Dates: start: 20141024

REACTIONS (2)
  - Drug ineffective [Not Recovered/Not Resolved]
  - International normalised ratio decreased [Not Recovered/Not Resolved]

NARRATIVE: CASE EVENT DATE: 201405
